FAERS Safety Report 14242566 (Version 3)
Quarter: 2018Q1

REPORT INFORMATION
  Report Type: Spontaneous
  Country: US (occurrence: US)
  Receive Date: 20171201
  Receipt Date: 20180202
  Transmission Date: 20180508
  Serious: No
  Sender: FDA-Public Use
  Company Number: US-PFIZER INC-2017514371

PATIENT
  Age: 55 Year
  Sex: Male
  Weight: 104.33 kg

DRUGS (5)
  1. GENOTROPIN [Suspect]
     Active Substance: SOMATROPIN
     Indication: FATIGUE
     Dosage: 0.2 MG, ONCE DAILY (INJECTION)
     Dates: start: 20170804
  2. GENOTROPIN [Suspect]
     Active Substance: SOMATROPIN
     Indication: LETHARGY
  3. GENOTROPIN [Suspect]
     Active Substance: SOMATROPIN
     Indication: BLOOD GROWTH HORMONE DECREASED
  4. GENOTROPIN [Suspect]
     Active Substance: SOMATROPIN
     Indication: ASTHENIA
  5. GENOTROPIN [Suspect]
     Active Substance: SOMATROPIN
     Indication: APATHY

REACTIONS (5)
  - Pain [Recovered/Resolved]
  - Arthralgia [Recovered/Resolved]
  - Headache [Recovered/Resolved]
  - Influenza [Recovered/Resolved]
  - Fatigue [Recovered/Resolved]

NARRATIVE: CASE EVENT DATE: 201708
